FAERS Safety Report 8077931-7 (Version None)
Quarter: 2012Q1

REPORT INFORMATION
  Report Type: 
  Country: None (occurrence: None)
  Receive Date: 20120127
  Receipt Date: 20110103
  Transmission Date: 20120608
  Serious: No
  Sender: FDA-Public Use
  Company Number: US-ABBOTT-11P-163-0695370-00

PATIENT
  Sex: Male
  Weight: 72.64 kg

DRUGS (6)
  1. ALTACE [Concomitant]
     Indication: ARTERIAL DISORDER
  2. VYTORIN [Concomitant]
     Indication: BLOOD CHOLESTEROL INCREASED
  3. PLAVIX [Concomitant]
     Indication: THROMBOSIS PROPHYLAXIS
  4. HUMIRA [Suspect]
     Indication: CROHN'S DISEASE
     Dates: start: 20090901
  5. FLOMAX [Concomitant]
     Indication: PRODUCT USED FOR UNKNOWN INDICATION
  6. WELLBUTRIN [Concomitant]
     Indication: DEPRESSION

REACTIONS (2)
  - DRUG DOSE OMISSION [None]
  - NASOPHARYNGITIS [None]
